FAERS Safety Report 5368521-5 (Version None)
Quarter: 2007Q2

REPORT INFORMATION
  Report Type: 
  Country: None (occurrence: None)
  Receive Date: 20070621
  Receipt Date: 20070612
  Transmission Date: 20071010
  Serious: Yes (Other)
  Sender: FDA-Public Use
  Company Number: 163-21880-07060716

PATIENT
  Age: 71 Year
  Sex: Female

DRUGS (1)
  1. REVLIMIB (LENALIDOMIDE) (15 MILLIGRAM, CAPSULES) [Suspect]
     Indication: MULTIPLE MYELOMA
     Dosage: 15 MG, X 21 DAYS, ORAL
     Route: 048
     Dates: start: 20060828

REACTIONS (1)
  - METASTASES TO KIDNEY [None]
